FAERS Safety Report 6028674-2 (Version None)
Quarter: 2009Q1

REPORT INFORMATION
  Report Type: 
  Country: None (occurrence: None)
  Receive Date: 20090102
  Receipt Date: 20071220
  Transmission Date: 20090719
  Serious: Yes (Death, Hospitalization)
  Sender: FDA-Public Use
  Company Number: DSA_31104_2007

PATIENT
  Sex: Male

DRUGS (8)
  1. HERBESSER       (HERBESSER - DILTIAZEM HYDROCHLORIDE) (NOT SPECIFIED) [Suspect]
     Indication: HYPERTENSIVE EMERGENCY
     Dosage: INTRAVENOUS (NOT OTHERWISE SPECIFIED, (INTRAVENOUS (NOT OTHERWISE SPECIFIED) )
     Route: 042
     Dates: start: 20071129, end: 20071129
  2. HERBESSER       (HERBESSER - DILTIAZEM HYDROCHLORIDE) (NOT SPECIFIED) [Suspect]
     Indication: HYPERTENSIVE EMERGENCY
     Dosage: INTRAVENOUS (NOT OTHERWISE SPECIFIED, (INTRAVENOUS (NOT OTHERWISE SPECIFIED) )
     Route: 042
     Dates: start: 20071129, end: 20071130
  3. DIAZEPAM [Suspect]
     Indication: SEDATIVE THERAPY
     Dosage: 2.5 MG 1X  INTRAVENOUS (NOT OTHERWISE SPECIFIED)
     Route: 042
     Dates: start: 20071130, end: 20071130
  4. DIOVAN [Suspect]
     Indication: HYPERTENSION
     Dosage: ORAL
     Route: 048
     Dates: start: 20071129, end: 20071130
  5. RHYTHMY   /01029801/       (RHYTHMY - RILMAZAFONE) (NOT SPECIFIED) [Suspect]
     Indication: INSOMNIA
     Dosage: ORAL
     Route: 048
     Dates: start: 20071129
  6. SERENACE         (SERENACE - HALOPERIDOL) (NOT SPECIFIED) [Suspect]
     Indication: SEDATION
     Dosage: DF INTRAVENOUS (NOT OTHERWISE SPECIFIED), (DF INTRAVENOUS (NOT OTHERWISE SPECIFIED)
     Dates: start: 20071129, end: 20071129
  7. SERENACE         (SERENACE - HALOPERIDOL) (NOT SPECIFIED) [Suspect]
     Indication: SEDATION
     Dosage: DF INTRAVENOUS (NOT OTHERWISE SPECIFIED), (DF INTRAVENOUS (NOT OTHERWISE SPECIFIED)
     Dates: start: 20071130, end: 20071130
  8. ARTIST     (ARTIST - CARVEDILOL) (NOT SPECIFIED) [Suspect]
     Indication: DRUG USE FOR UNKNOWN INDICATION
     Dosage: DF

REACTIONS (12)
  - AGGRESSION [None]
  - AV DISSOCIATION [None]
  - BLOOD PRESSURE IMMEASURABLE [None]
  - BLOOD PRESSURE SYSTOLIC DECREASED [None]
  - BRADYCARDIA [None]
  - CARDIAC ARREST [None]
  - CARDIAC FAILURE [None]
  - DRUG INEFFECTIVE [None]
  - MYDRIASIS [None]
  - PYREXIA [None]
  - RESTLESSNESS [None]
  - UNEVALUABLE EVENT [None]
